FAERS Safety Report 7863613-0 (Version None)
Quarter: 2011Q4

REPORT INFORMATION
  Report Type: 
  Country: None (occurrence: None)
  Receive Date: 20111027
  Receipt Date: 20101207
  Transmission Date: 20120403
  Serious: No
  Sender: FDA-Public Use
  Company Number: US-AMGEN-USASP2010007842

PATIENT
  Age: 55 Year
  Sex: Female

DRUGS (1)
  1. ENBREL [Suspect]
     Indication: PSORIASIS
     Dates: start: 20101202

REACTIONS (6)
  - INSOMNIA [None]
  - EMOTIONAL DISTRESS [None]
  - DISTURBANCE IN ATTENTION [None]
  - ASTHENIA [None]
  - HEADACHE [None]
  - MALAISE [None]
